FAERS Safety Report 17011271 (Version 1)
Quarter: 2019Q4

REPORT INFORMATION
  Report Type: Spontaneous
  Country: US (occurrence: US)
  Receive Date: 20191001
  Receipt Date: 20191001
  Transmission Date: 20200122
  Serious: No
  Sender: FDA-Public Use
  Company Number: None

PATIENT
  Age: 78 Year
  Sex: Male

DRUGS (1)
  1. SUTENT [Suspect]
     Active Substance: SUNITINIB MALATE
     Route: 048
     Dates: start: 20190703

REACTIONS (5)
  - Chronic obstructive pulmonary disease [None]
  - Nasal congestion [None]
  - White blood cell count decreased [None]
  - Flatulence [None]
  - Diarrhoea [None]

NARRATIVE: CASE EVENT DATE: 20191001
